FAERS Safety Report 19691394 (Version 1)
Quarter: 2021Q3

REPORT INFORMATION
  Report Type: Spontaneous
  Country: US (occurrence: US)
  Receive Date: 20210812
  Receipt Date: 20210812
  Transmission Date: 20211014
  Serious: Yes (Other)
  Sender: FDA-Public Use
  Company Number: US-SAOL THERAPEUTICS-2021SAO00274

PATIENT
  Age: 52 Year
  Sex: Male

DRUGS (6)
  1. CLONIDINE. [Suspect]
     Active Substance: CLONIDINE
     Indication: SPINAL CORD INJURY
  2. LIORESAL [Suspect]
     Active Substance: BACLOFEN
     Indication: MUSCLE SPASTICITY
     Dosage: 208.8 ?G, \DAY
     Route: 037
     Dates: end: 20210728
  3. HYDROMORPHONE [Suspect]
     Active Substance: HYDROMORPHONE
     Indication: SPINAL CORD INJURY
  4. LIORESAL [Suspect]
     Active Substance: BACLOFEN
     Indication: SPINAL CORD INJURY
  5. HYDROMORPHONE [Suspect]
     Active Substance: HYDROMORPHONE
     Indication: MUSCLE SPASTICITY
     Dosage: 8.381 MG, \DAY
     Route: 037
     Dates: end: 20210728
  6. CLONIDINE. [Suspect]
     Active Substance: CLONIDINE
     Indication: MUSCLE SPASTICITY
     Dosage: 37.4 ?G, \DAY
     Dates: end: 20210728

REACTIONS (3)
  - Drug dose omission by device [Not Recovered/Not Resolved]
  - COVID-19 [Unknown]
  - Drug withdrawal syndrome [Unknown]

NARRATIVE: CASE EVENT DATE: 20210717
